FAERS Safety Report 9379584 (Version 1)
Quarter: 2013Q3

REPORT INFORMATION
  Report Type: Spontaneous
  Country: DE (occurrence: DE)
  Receive Date: 20130702
  Receipt Date: 20130702
  Transmission Date: 20140515
  Serious: Yes (Hospitalization)
  Sender: FDA-Public Use
  Company Number: DE-ASTRAZENECA-2013SE48522

PATIENT
  Age: 49 Year
  Sex: Male

DRUGS (2)
  1. BRILIQUE [Suspect]
     Dosage: DAILY
     Route: 048
     Dates: start: 201303
  2. ASS [Concomitant]
     Dosage: DAILY
     Route: 048
     Dates: start: 201303

REACTIONS (3)
  - Loss of consciousness [Recovered/Resolved]
  - Dyspnoea [Recovering/Resolving]
  - Dizziness [Recovering/Resolving]
